FAERS Safety Report 7825947-5 (Version None)
Quarter: 2011Q4

REPORT INFORMATION
  Report Type: 
  Country: None (occurrence: None)
  Receive Date: 20111019
  Receipt Date: 20111010
  Transmission Date: 20120403
  Serious: Yes (Other)
  Sender: FDA-Public Use
  Company Number: RO-ABBOTT-11P-135-0865144-00

PATIENT

DRUGS (2)
  1. VALPROIC ACID [Suspect]
     Indication: CONVULSION
     Route: 042
  2. VALPROIC ACID [Suspect]
     Route: 042

REACTIONS (1)
  - NO THERAPEUTIC RESPONSE [None]
